FAERS Safety Report 8091244-9 (Version None)
Quarter: 2012Q1

REPORT INFORMATION
  Report Type: 
  Country: None (occurrence: None)
  Receive Date: 20120130
  Receipt Date: 20120130
  Transmission Date: 20120608
  Serious: Yes (Hospitalization, Other)
  Sender: FDA-Public Use
  Company Number: None

PATIENT
  Age: 63 Year
  Sex: Male
  Weight: 97.6 kg

DRUGS (1)
  1. SULFAMETHOXAZOLE AND TRIMETHOPRIM [Suspect]
     Indication: CARBUNCLE
     Dosage: 800 MG BID PO
     Route: 048
     Dates: start: 20111120, end: 20111201

REACTIONS (12)
  - RASH PRURITIC [None]
  - DIZZINESS [None]
  - HYPOPHAGIA [None]
  - DIARRHOEA [None]
  - TREMOR [None]
  - NAUSEA [None]
  - HYPERKALAEMIA [None]
  - GAIT DISTURBANCE [None]
  - RASH MACULAR [None]
  - PYREXIA [None]
  - RENAL TUBULAR NECROSIS [None]
  - RENAL FAILURE ACUTE [None]
